FAERS Safety Report 7725371-X (Version None)
Quarter: 2011Q3

REPORT INFORMATION
  Report Type: 
  Country: None (occurrence: None)
  Receive Date: 20110902
  Receipt Date: 20110822
  Transmission Date: 20111222
  Serious: Yes (Hospitalization)
  Sender: FDA-Public Use
  Company Number: AU-JNJFOC-20110810737

PATIENT
  Sex: Male

DRUGS (12)
  1. ZYTIGA [Suspect]
     Route: 048
     Dates: start: 20080903
  2. SOTALOL HCL [Concomitant]
     Indication: ATRIAL FLUTTER
     Route: 048
     Dates: start: 20060101
  3. FISH OIL [Concomitant]
     Indication: CARDIOVASCULAR EVENT PROPHYLAXIS
     Route: 048
     Dates: start: 20030101
  4. CALCIUM CARBONATE [Concomitant]
     Indication: BONE DISORDER
     Route: 048
     Dates: start: 20030101
  5. DESVENLAFAXINE [Concomitant]
     Indication: DEPRESSION
     Route: 048
     Dates: start: 20100304
  6. ZYTIGA [Suspect]
     Indication: PROSTATE CANCER METASTATIC
     Route: 048
     Dates: start: 20101027
  7. ASPIRIN [Concomitant]
     Indication: HYPERTENSION
     Route: 048
     Dates: start: 20060101
  8. CALCIUM AND MAGNESIUM [Concomitant]
     Indication: MINERAL SUPPLEMENTATION
     Route: 048
     Dates: start: 20030101
  9. MACU-VISION [Concomitant]
     Indication: MACULAR DEGENERATION
     Route: 048
     Dates: start: 20020101
  10. PREDNISONE [Suspect]
     Indication: PROSTATE CANCER METASTATIC
     Route: 048
     Dates: start: 20101027
  11. ZOLEDRONIC ACID [Concomitant]
     Indication: BONE DISORDER
     Route: 042
     Dates: start: 20080801
  12. PANAMAX [Concomitant]
     Indication: CANCER PAIN
     Route: 048
     Dates: start: 20060601

REACTIONS (1)
  - DYSPNOEA [None]
